FAERS Safety Report 13768002 (Version 4)
Quarter: 2017Q4

REPORT INFORMATION
  Report Type: Spontaneous
  Country: US (occurrence: US)
  Receive Date: 20170719
  Receipt Date: 20171102
  Transmission Date: 20180320
  Serious: Yes (Hospitalization, Other)
  Sender: FDA-Public Use
  Company Number: US-LUPIN (EUROPE) LIMITED-2017-03828

PATIENT
  Age: 84 Year
  Sex: Male

DRUGS (2)
  1. DONEPEZIL. [Suspect]
     Active Substance: DONEPEZIL
     Dosage: 35 MG, (7 DOSES OF HIS DAILY 5 MG TABLETS)
     Route: 048
  2. DONEPEZIL. [Suspect]
     Active Substance: DONEPEZIL
     Indication: PRODUCT USED FOR UNKNOWN INDICATION
     Dosage: 5 MG, QD
     Route: 048

REACTIONS (4)
  - Accidental overdose [Unknown]
  - Cholinergic syndrome [Unknown]
  - Supraventricular extrasystoles [Unknown]
  - Electrocardiogram QT prolonged [Recovered/Resolved]
